FAERS Safety Report 8349713 (Version 2)
Quarter: 2012Q4

REPORT INFORMATION
  Report Type: 
  Country: US (occurrence: US)
  Receive Date: 20120123
  Receipt Date: 20120925
  Transmission Date: 20130627
  Serious: No
  Sender: FDA-Public Use
  Company Number: US-PFIZER INC-2012017225

PATIENT
  Age: 59 Year
  Sex: Female
  Weight: 54.4 kg

DRUGS (5)
  1. CHANTIX [Suspect]
     Indication: SMOKING CESSATION THERAPY
     Dosage: UNK
     Dates: start: 20101208, end: 20111208
  2. CHANTIX [Suspect]
     Dosage: 0.5 mg, 1x/day
     Route: 048
     Dates: start: 201201, end: 201201
  3. CHANTIX [Suspect]
     Dosage: 1 mg, 2x/day
     Route: 048
     Dates: start: 201201, end: 20120119
  4. VERAPAMIL [Concomitant]
     Indication: HYPERTENSION
     Dosage: UNK
  5. ATENOLOL [Concomitant]
     Indication: HYPERTENSION
     Dosage: UNK

REACTIONS (2)
  - Nausea [Not Recovered/Not Resolved]
  - Gastric disorder [Unknown]
